FAERS Safety Report 18683083 (Version 1)
Quarter: 2020Q4

REPORT INFORMATION
  Report Type: Spontaneous
  Country: US (occurrence: US)
  Receive Date: 20201229
  Receipt Date: 20201229
  Transmission Date: 20210114
  Serious: Yes (Hospitalization)
  Sender: FDA-Public Use
  Company Number: None

PATIENT
  Sex: Female
  Weight: 56.5 kg

DRUGS (6)
  1. ZINECARD [Concomitant]
     Active Substance: DEXRAZOXANE HYDROCHLORIDE
  2. GLEEVEC [Concomitant]
     Active Substance: IMATINIB MESYLATE
  3. CYTARABINE (63878) [Suspect]
     Active Substance: CYTARABINE
  4. DOXORUBIN HYDROCHLORIDE [Concomitant]
     Active Substance: DOXORUBICIN HYDROCHLORIDE
  5. VINCRISTINE SULFATE. [Concomitant]
     Active Substance: VINCRISTINE SULFATE
  6. PEG-L (PEGASPARGASE, ONCOSPAR) [Concomitant]

REACTIONS (6)
  - Unresponsive to stimuli [None]
  - Tremor [None]
  - Hypotension [None]
  - Pyrexia [None]
  - Eye movement disorder [None]
  - Urosepsis [None]

NARRATIVE: CASE EVENT DATE: 20201224
